FAERS Safety Report 12203109 (Version 1)
Quarter: 2016Q1

REPORT INFORMATION
  Report Type: Spontaneous
  Country: US (occurrence: US)
  Receive Date: 20160323
  Receipt Date: 20160323
  Transmission Date: 20160526
  Serious: No
  Sender: FDA-Public Use
  Company Number: US-ZYDUS-009672

PATIENT
  Sex: Female
  Weight: 122 kg

DRUGS (10)
  1. GABAPENTIN. [Concomitant]
     Active Substance: GABAPENTIN
     Indication: NEURALGIA
     Dosage: TWICE A DAY
     Route: 048
     Dates: start: 20150904
  2. METFORMIN [Concomitant]
     Active Substance: METFORMIN HYDROCHLORIDE
     Indication: POLYCYSTIC OVARIES
     Dosage: ONCE A DAY
     Route: 048
     Dates: start: 20151006
  3. PANTOPRAZOLE [Concomitant]
     Active Substance: PANTOPRAZOLE SODIUM
     Indication: GASTROOESOPHAGEAL REFLUX DISEASE
     Dosage: TWICE A DAY
     Route: 048
     Dates: start: 20150919
  4. VITAMINS NOS [Concomitant]
     Active Substance: VITAMINS
     Dosage: ONCE DAILY
     Route: 048
  5. OENOTHERA BIENNIS [Concomitant]
     Active Substance: OENOTHERA BIENNIS
     Indication: FACTOR V LEIDEN MUTATION
     Dosage: AT NIGHT
     Route: 048
     Dates: start: 2013
  6. BUDESONIDE. [Concomitant]
     Active Substance: BUDESONIDE
     Indication: ENTERITIS
     Dosage: EVERY MORNING
     Route: 048
     Dates: start: 20150928
  7. SUCRALFATE. [Concomitant]
     Active Substance: SUCRALFATE
     Dosage: AS NEEDED
     Route: 048
     Dates: start: 20150921
  8. TRAMADOL. [Suspect]
     Active Substance: TRAMADOL
     Indication: PAIN
     Dosage: QD - BID AS NEEDED
     Route: 048
     Dates: start: 2004
  9. IBUPROFEN. [Concomitant]
     Active Substance: IBUPROFEN
     Indication: CHEST PAIN
     Route: 048
     Dates: start: 200501
  10. LORATADINE. [Concomitant]
     Active Substance: LORATADINE
     Indication: HYPERSENSITIVITY
     Dosage: ONCE A DAY
     Route: 048

REACTIONS (2)
  - Vomiting [Not Recovered/Not Resolved]
  - Migraine [Not Recovered/Not Resolved]
